FAERS Safety Report 15999651 (Version 4)
Quarter: 2019Q2

REPORT INFORMATION
  Report Type: Report from Study
  Country: US (occurrence: US)
  Receive Date: 20190225
  Receipt Date: 20190403
  Transmission Date: 20190711
  Serious: Yes (Other)
  Sender: FDA-Public Use
  Company Number: US-JNJFOC-20181110993

PATIENT
  Age: 66 Year
  Sex: Male

DRUGS (5)
  1. IMBRUVICA [Suspect]
     Active Substance: IBRUTINIB
     Indication: LYMPHOCYTIC LEUKAEMIA
     Route: 048
     Dates: start: 20181101
  2. IMBRUVICA [Suspect]
     Active Substance: IBRUTINIB
     Indication: LYMPHOCYTIC LEUKAEMIA
     Route: 048
  3. ASPIRIN. [Suspect]
     Active Substance: ASPIRIN
     Indication: PRODUCT USED FOR UNKNOWN INDICATION
     Route: 065
  4. IMBRUVICA [Suspect]
     Active Substance: IBRUTINIB
     Indication: LYMPHOCYTIC LEUKAEMIA
     Route: 048
     Dates: start: 20181102, end: 20181215
  5. IMBRUVICA [Suspect]
     Active Substance: IBRUTINIB
     Indication: LYMPHOCYTIC LEUKAEMIA
     Route: 048
     Dates: start: 201901, end: 20190222

REACTIONS (18)
  - Intestinal haemorrhage [Unknown]
  - Weight decreased [Recovered/Resolved]
  - Cold sweat [Unknown]
  - Headache [Recovering/Resolving]
  - Pain in extremity [Unknown]
  - Nausea [Unknown]
  - Gastroenteritis viral [Recovered/Resolved]
  - Taste disorder [Unknown]
  - Muscle spasms [Unknown]
  - Fatigue [Recovering/Resolving]
  - Abdominal pain [Recovered/Resolved]
  - Thirst [Unknown]
  - Peripheral swelling [Unknown]
  - Arthralgia [Unknown]
  - Decreased appetite [Unknown]
  - Feeling abnormal [Recovering/Resolving]
  - Stomatitis [Unknown]
  - Myalgia [Unknown]

NARRATIVE: CASE EVENT DATE: 2018
